FAERS Safety Report 13894730 (Version 1)
Quarter: 2017Q3

REPORT INFORMATION
  Report Type: Spontaneous
  Country: PL (occurrence: PL)
  Receive Date: 20170823
  Receipt Date: 20170823
  Transmission Date: 20171127
  Serious: Yes (Other)
  Sender: FDA-Public Use
  Company Number: PL-TAKEDA-2017TEU003592

PATIENT
  Sex: Female
  Weight: 57 kg

DRUGS (1)
  1. TACHOSIL [Suspect]
     Active Substance: FIBRINOGEN HUMAN\THROMBIN HUMAN
     Indication: SPINAL LAMINECTOMY
     Dosage: UNK
     Route: 061
     Dates: start: 20170618, end: 20170618

REACTIONS (1)
  - Diplegia [Recovered/Resolved]

NARRATIVE: CASE EVENT DATE: 20170618
